FAERS Safety Report 22867747 (Version 5)
Quarter: 2023Q4

REPORT INFORMATION
  Report Type: Report from Study
  Country: CA (occurrence: CA)
  Receive Date: 20230825
  Receipt Date: 20231227
  Transmission Date: 20240109
  Serious: Yes (Hospitalization, Other)
  Sender: FDA-Public Use
  Company Number: CA-JNJFOC-20230527282

PATIENT
  Age: 27 Year
  Sex: Female

DRUGS (1)
  1. SIMPONI [Suspect]
     Active Substance: GOLIMUMAB
     Indication: Colitis ulcerative
     Route: 058
     Dates: start: 20151127

REACTIONS (8)
  - Rhinitis [Recovering/Resolving]
  - Adverse event [Unknown]
  - Colitis ulcerative [Unknown]
  - Accident [Unknown]
  - Exposure during pregnancy [Recovered/Resolved]
  - Nasal injury [Unknown]
  - Anaemia [Unknown]
  - Hypertension [Unknown]

NARRATIVE: CASE EVENT DATE: 20230101
